FAERS Safety Report 9956561 (Version 1)
Quarter: 2014Q1

REPORT INFORMATION
  Report Type: Report from Study
  Country: US (occurrence: US)
  Receive Date: 20140304
  Receipt Date: 20140304
  Transmission Date: 20141002
  Serious: No
  Sender: FDA-Public Use
  Company Number: US-ABBVIE-13P-163-1094706-00

PATIENT
  Age: 24 Year
  Sex: Female
  Weight: 68.1 kg

DRUGS (11)
  1. HUMIRA [Suspect]
     Indication: CROHN^S DISEASE
     Dates: start: 20130517, end: 20130517
  2. INDERAL [Concomitant]
     Indication: SYNCOPE
  3. CYMBALTA [Concomitant]
     Indication: FIBROMYALGIA
  4. FLEXERIL [Concomitant]
     Indication: FIBROMYALGIA
  5. MOBIC [Concomitant]
     Indication: FIBROMYALGIA
  6. DESOGEN [Concomitant]
     Indication: POLYCYSTIC OVARIES
  7. PENTASA [Concomitant]
     Indication: CROHN^S DISEASE
  8. OMEPRAZOLE [Concomitant]
     Indication: GASTROOESOPHAGEAL REFLUX DISEASE
  9. DONNATAL [Concomitant]
     Indication: CROHN^S DISEASE
  10. SINGULAIR [Concomitant]
     Indication: ASTHMA
  11. ZOFRAN [Concomitant]
     Indication: NAUSEA

REACTIONS (1)
  - Flatulence [Recovered/Resolved]
